FAERS Safety Report 8180302-6 (Version None)
Quarter: 2012Q1

REPORT INFORMATION
  Report Type: 
  Country: None (occurrence: None)
  Receive Date: 20120215
  Receipt Date: 20120210
  Transmission Date: 20120608
  Serious: Yes (Hospitalization)
  Sender: FDA-Public Use
  Company Number: 2011029740

PATIENT
  Age: 33 Year
  Sex: Female

DRUGS (7)
  1. RITUXIMAB (RITUXIMAB) [Suspect]
     Dosage: 375 MG/M2 2X/WEEK
     Route: 042
     Dates: start: 20100917, end: 20100924
  2. DEXAMETHASONE [Suspect]
     Indication: ANTIEMETIC SUPPORTIVE CARE
     Route: 048
     Dates: start: 20100907, end: 20100910
  3. NORETHINDRONE [Suspect]
     Dosage: 5 MG TID
     Route: 048
     Dates: start: 20100922, end: 20100928
  4. TRANEXAMIC ACID [Suspect]
     Route: 048
     Dates: start: 20100922, end: 20100928
  5. NPLATE (ROMIPLOSTIM) (PRETEINS NOS) [Suspect]
     Indication: IDIOPATHIC THROMBOCYTOPENIC PURPURA
     Dosage: 1 MG/KG QD
     Route: 058
     Dates: start: 20100920, end: 20100920
  6. PRIVIGEN [Suspect]
     Indication: IDIOPATHIC THROMBOCYTOPENIC PURPURA
     Dates: start: 20100922, end: 20100923
  7. LANSOPRAZOLE [Suspect]
     Indication: GASTROOESOPHAGEAL REFLUX PROPHYLAXIS
     Dosage: 30 MG QD
     Route: 048
     Dates: start: 20100907, end: 20100928

REACTIONS (10)
  - RASH ERYTHEMATOUS [None]
  - ARTHRALGIA [None]
  - HAEMATOCRIT DECREASED [None]
  - HAEMOGLOBIN DECREASED [None]
  - MELAENA [None]
  - VAGINAL HAEMORRHAGE [None]
  - PURPURA [None]
  - RED BLOOD CELL COUNT DECREASED [None]
  - RECTAL HAEMORRHAGE [None]
  - RASH MACULO-PAPULAR [None]
